FAERS Safety Report 18882090 (Version 2)
Quarter: 2021Q2

REPORT INFORMATION
  Report Type: Spontaneous
  Country: US (occurrence: US)
  Receive Date: 20210211
  Receipt Date: 20210413
  Transmission Date: 20210717
  Serious: No
  Sender: FDA-Public Use
  Company Number: US-TAKEDA-2021TUS006371

PATIENT
  Age: 73 Year
  Sex: Female
  Weight: 104 kg

DRUGS (1)
  1. ENTYVIO [Suspect]
     Active Substance: VEDOLIZUMAB
     Indication: CROHN^S DISEASE
     Dosage: UNK
     Route: 065
     Dates: start: 20201123

REACTIONS (4)
  - Nasal discomfort [Unknown]
  - Rash macular [Unknown]
  - Conjunctivitis [Unknown]
  - Rash [Unknown]

NARRATIVE: CASE EVENT DATE: 202101
